FAERS Safety Report 11872661 (Version 2)
Quarter: 2016Q1

REPORT INFORMATION
  Report Type: Spontaneous
  Country: JP (occurrence: JP)
  Receive Date: 20151228
  Receipt Date: 20160129
  Transmission Date: 20160526
  Serious: Yes (Hospitalization)
  Sender: FDA-Public Use
  Company Number: JP-BAYER-2015-491012

PATIENT
  Age: 45 Year
  Sex: Female

DRUGS (2)
  1. BAYASPIRIN [Suspect]
     Active Substance: ASPIRIN
     Dosage: UNK
     Route: 048
  2. WARFARIN POTASSIUM [Interacting]
     Active Substance: WARFARIN POTASSIUM
     Indication: COLITIS ISCHAEMIC
     Route: 048

REACTIONS (6)
  - Intestinal scarring [Recovering/Resolving]
  - Haematochezia [None]
  - Labelled drug-drug interaction medication error [None]
  - Colitis ischaemic [Recovering/Resolving]
  - Gastrointestinal oedema [Recovering/Resolving]
  - Abdominal pain lower [Recovering/Resolving]
